FAERS Safety Report 6655823-5 (Version None)
Quarter: 2010Q1

REPORT INFORMATION
  Report Type: 
  Country: None (occurrence: None)
  Receive Date: 20100329
  Receipt Date: 20100324
  Transmission Date: 20100710
  Serious: Yes (Hospitalization)
  Sender: FDA-Public Use
  Company Number: IT-ROCHE-693258

PATIENT
  Sex: Female

DRUGS (5)
  1. ROCEPHIN [Suspect]
     Indication: TRACHEITIS
     Route: 030
     Dates: start: 20100317, end: 20100318
  2. ACETYLCYSTEINE [Concomitant]
     Route: 048
     Dates: start: 20100317, end: 20100319
  3. DIHYDROCODEINE BITARTRATE INJ [Concomitant]
     Route: 048
     Dates: start: 20100317, end: 20100319
  4. BETAMETHASONE [Concomitant]
     Route: 048
     Dates: start: 20100317, end: 20100319
  5. PARACETAMOL [Concomitant]
     Route: 065

REACTIONS (6)
  - DYSPHONIA [None]
  - DYSPNOEA [None]
  - HYPERHIDROSIS [None]
  - PRESYNCOPE [None]
  - PRURITUS GENERALISED [None]
  - RASH [None]
